FAERS Safety Report 20939833 (Version 2)
Quarter: 2022Q3

REPORT INFORMATION
  Report Type: Spontaneous
  Country: US (occurrence: US)
  Receive Date: 20220609
  Receipt Date: 20220705
  Transmission Date: 20221027
  Serious: Yes (Hospitalization, Other)
  Sender: FDA-Public Use
  Company Number: US-JNJFOC-20220610300

PATIENT
  Age: 68 Year
  Sex: Female

DRUGS (13)
  1. OPSUMIT [Suspect]
     Active Substance: MACITENTAN
     Indication: Product used for unknown indication
     Route: 048
     Dates: start: 20210726
  2. SIMVASTATIN [Concomitant]
     Active Substance: SIMVASTATIN
  3. ADEMPAS [Concomitant]
     Active Substance: RIOCIGUAT
  4. MONTELUKAST [Concomitant]
     Active Substance: MONTELUKAST SODIUM
  5. TORSEMIDE [Concomitant]
     Active Substance: TORSEMIDE
  6. SPIRONOLACTONE [Concomitant]
     Active Substance: SPIRONOLACTONE
  7. ESOMEPRAZOLE [Concomitant]
     Active Substance: ESOMEPRAZOLE
  8. LEVOTHYROXINE [Concomitant]
     Active Substance: LEVOTHYROXINE
  9. ALLOPURINOL [Concomitant]
     Active Substance: ALLOPURINOL
  10. DESLORATADINE [Concomitant]
     Active Substance: DESLORATADINE
  11. INSULIN NOS [Concomitant]
     Active Substance: INSULIN NOS
  12. TRULICITY [Concomitant]
     Active Substance: DULAGLUTIDE
  13. PRO FE [Concomitant]

REACTIONS (2)
  - Pancreatitis [Unknown]
  - Hospitalisation [Recovering/Resolving]

NARRATIVE: CASE EVENT DATE: 20220101
